FAERS Safety Report 17212131 (Version 3)
Quarter: 2020Q1

REPORT INFORMATION
  Report Type: Report from Study
  Country: US (occurrence: US)
  Receive Date: 20191230
  Receipt Date: 20200217
  Transmission Date: 20200409
  Serious: Yes (Other)
  Sender: FDA-Public Use
  Company Number: US-EMD SERONO-9134939

PATIENT
  Age: 47 Year
  Sex: Female

DRUGS (3)
  1. BENADRYL [Suspect]
     Active Substance: DIPHENHYDRAMINE HYDROCHLORIDE
     Indication: PRURITUS
  2. REBIF [Suspect]
     Active Substance: INTERFERON BETA-1A
     Route: 058
     Dates: start: 20191206
  3. REBIF [Suspect]
     Active Substance: INTERFERON BETA-1A
     Indication: MULTIPLE SCLEROSIS
     Route: 058
     Dates: start: 20191109

REACTIONS (6)
  - Bone pain [Unknown]
  - Urinary retention [Unknown]
  - Procedural pain [Unknown]
  - Product dose omission [Unknown]
  - Spinal operation [Unknown]
  - Muscular weakness [Unknown]

NARRATIVE: CASE EVENT DATE: 201912
